FAERS Safety Report 5585060-7 (Version None)
Quarter: 2008Q1

REPORT INFORMATION
  Report Type: 
  Country: None (occurrence: None)
  Receive Date: 20080109
  Receipt Date: 20080104
  Transmission Date: 20080703
  Serious: Yes (Other)
  Sender: FDA-Public Use
  Company Number: GB-JNJFOC-20080100943

PATIENT
  Sex: Female
  Weight: 73 kg

DRUGS (17)
  1. REMICADE [Suspect]
     Indication: RHEUMATOID ARTHRITIS
     Route: 042
  2. SULFASALAZINE [Concomitant]
  3. METHOTREXATE [Concomitant]
  4. ADCAL [Concomitant]
  5. ATENOLOL [Concomitant]
  6. BENDROFLUAZIDE [Concomitant]
  7. CLOPIDOGREL [Concomitant]
  8. CO-DYDRAMOL [Concomitant]
  9. FELODIPINE [Concomitant]
  10. FERROUS SULFATE TAB [Concomitant]
  11. FOLIC ACID [Concomitant]
  12. GTN SPRAY [Concomitant]
  13. NAFTIDROFURYL OXALATE [Concomitant]
  14. RISEDRONATE SODIUM [Concomitant]
  15. SIMVASTATIN [Concomitant]
  16. TRAMADOL HCL [Concomitant]
  17. FLAVOXATE HYDROCHLORIDE COATED TAB [Concomitant]

REACTIONS (1)
  - BREAST CANCER [None]
